FAERS Safety Report 10772845 (Version 1)
Quarter: 2015Q1

REPORT INFORMATION
  Report Type: Other
  Country: US (occurrence: US)
  Receive Date: 20150207
  Receipt Date: 20150207
  Transmission Date: 20150721
  Serious: Yes (Hospitalization)
  Sender: FDA-Public Use
  Company Number: US-ACORDA-ACO_106153_2014

PATIENT
  Sex: Female

DRUGS (2)
  1. AMPYRA [Suspect]
     Active Substance: DALFAMPRIDINE
     Indication: PRODUCT USED FOR UNKNOWN INDICATION
     Dosage: 10 MG,Q12 HOURS
     Route: 048
     Dates: start: 20130628
  2. BUPROPION [Concomitant]
     Active Substance: BUPROPION
     Indication: PRODUCT USED FOR UNKNOWN INDICATION
     Route: 065

REACTIONS (5)
  - Depression [Unknown]
  - Hospitalisation [Unknown]
  - Insomnia [Recovered/Resolved]
  - Gait disturbance [Unknown]
  - Inappropriate schedule of drug administration [Unknown]
